FAERS Safety Report 9781227 (Version 3)
Quarter: 2013Q4

REPORT INFORMATION
  Report Type: Spontaneous
  Country: US (occurrence: US)
  Receive Date: 20131224
  Receipt Date: 20131227
  Transmission Date: 20140711
  Serious: Yes (Other)
  Sender: FDA-Public Use
  Company Number: CHPA2013US018371

PATIENT
  Age: 83 Year
  Sex: Female

DRUGS (5)
  1. VOLTAREN GEL [Suspect]
     Indication: TENDONITIS
     Dosage: 2 G, BID OR LESS
     Route: 061
     Dates: start: 20131206, end: 20131208
  2. VOLTAREN GEL [Suspect]
     Indication: OFF LABEL USE
  3. VOLTAREN GEL [Suspect]
     Indication: PRURITUS
  4. VOLTAREN GEL [Suspect]
     Indication: OFF LABEL USE
  5. COUMADIN SODIUM [Concomitant]
     Dosage: UNK
     Route: 065
     Dates: start: 2001

REACTIONS (7)
  - Application site swelling [Recovering/Resolving]
  - Application site discharge [Recovering/Resolving]
  - Arthralgia [Recovering/Resolving]
  - Pain in extremity [Recovering/Resolving]
  - Application site erythema [Recovering/Resolving]
  - Rash [Recovering/Resolving]
  - Drug administered at inappropriate site [Unknown]
